FAERS Safety Report 12447355 (Version 17)
Quarter: 2018Q2

REPORT INFORMATION
  Report Type: Spontaneous
  Country: BR (occurrence: BR)
  Receive Date: 20160608
  Receipt Date: 20180517
  Transmission Date: 20180711
  Serious: Yes (Hospitalization, Other)
  Sender: FDA-Public Use
  Company Number: BR-GLAXOSMITHKLINE-BR2015GSK073915

PATIENT
  Age: 53 Year
  Sex: Female
  Weight: 72 kg

DRUGS (14)
  1. BENLYSTA [Suspect]
     Active Substance: BELIMUMAB
     Dosage: UNK
     Dates: start: 20171003
  2. BENLYSTA [Suspect]
     Active Substance: BELIMUMAB
     Indication: SYSTEMIC LUPUS ERYTHEMATOSUS
     Dosage: UNK
     Dates: start: 20150608
  3. BENLYSTA [Suspect]
     Active Substance: BELIMUMAB
     Dosage: UNK
     Dates: start: 20170808
  4. PREDNISONA [Concomitant]
     Active Substance: PREDNISONE
     Indication: PRODUCT USED FOR UNKNOWN INDICATION
     Dosage: UNK
  5. CICLOFOSFAMIDA [Concomitant]
     Active Substance: CYCLOPHOSPHAMIDE
     Indication: PRODUCT USED FOR UNKNOWN INDICATION
     Dosage: UNK
  6. BENLYSTA [Suspect]
     Active Substance: BELIMUMAB
     Dosage: UNK
     Dates: start: 20170612
  7. BENLYSTA [Suspect]
     Active Substance: BELIMUMAB
     Dosage: UNK
     Dates: start: 20170711
  8. BENLYSTA [Suspect]
     Active Substance: BELIMUMAB
     Dosage: 730 MG, UNK
     Dates: start: 20171109
  9. ADDERA D3 [Suspect]
     Active Substance: CHOLECALCIFEROL
     Indication: PRODUCT USED FOR UNKNOWN INDICATION
     Dosage: 5 DF, QD
     Dates: start: 20170221, end: 20170225
  10. METHOTREXATE (METHOTREXATE SODIUM) [Concomitant]
     Active Substance: METHOTREXATE SODIUM
     Indication: PRODUCT USED FOR UNKNOWN INDICATION
     Dosage: UNK
  11. REUQUINOL (HYDROXYCHLOROQUINE SULFATE) [Concomitant]
     Indication: PRODUCT USED FOR UNKNOWN INDICATION
     Dosage: UNK
  12. AZATIOPRINA [Concomitant]
     Active Substance: AZATHIOPRINE
     Indication: PRODUCT USED FOR UNKNOWN INDICATION
     Dosage: UNK
  13. BENLYSTA [Suspect]
     Active Substance: BELIMUMAB
     Dosage: UNK
     Dates: start: 20170904
  14. NORFLOXACIN HYDROCHLORIDE [Concomitant]
     Active Substance: NORFLOXACIN HYDROCHLORIDE
     Indication: PRODUCT USED FOR UNKNOWN INDICATION
     Dosage: UNK
     Dates: start: 20170303

REACTIONS (25)
  - Pain in extremity [Unknown]
  - Muscle spasms [Recovered/Resolved]
  - Blood uric acid increased [Unknown]
  - Overdose [Unknown]
  - Cough [Unknown]
  - Drug dose omission [Unknown]
  - Wound [Unknown]
  - Weight decreased [Unknown]
  - Circumstance or information capable of leading to medication error [Unknown]
  - Herpes virus infection [Unknown]
  - Feeling cold [Recovered/Resolved]
  - Urinary incontinence [Unknown]
  - Pain [Recovering/Resolving]
  - Pulmonary mass [Unknown]
  - Dehydration [Unknown]
  - Nasal neoplasm [Not Recovered/Not Resolved]
  - Diarrhoea [Recovered/Resolved]
  - Productive cough [Recovered/Resolved]
  - Inappropriate schedule of drug administration [Recovered/Resolved]
  - Cataract [Recovered/Resolved]
  - Urinary tract infection [Recovered/Resolved]
  - Vein disorder [Unknown]
  - Skin disorder [Recovered/Resolved]
  - Nasopharyngitis [Unknown]
  - Dysphonia [Recovered/Resolved]

NARRATIVE: CASE EVENT DATE: 20160229
